FAERS Safety Report 19379308 (Version 1)
Quarter: 2021Q2

REPORT INFORMATION
  Report Type: Spontaneous
  Country: US (occurrence: US)
  Receive Date: 20210607
  Receipt Date: 20210607
  Transmission Date: 20210717
  Serious: Yes (Other)
  Sender: FDA-Public Use
  Company Number: US-SA-2021SA185780

PATIENT
  Age: 44 Year
  Sex: Female

DRUGS (1)
  1. ZANTAC [Suspect]
     Active Substance: RANITIDINE HYDROCHLORIDE
     Indication: DYSPEPSIA
     Dosage: UNKNOWN AT THIS TIME
     Dates: start: 201401, end: 201909

REACTIONS (9)
  - Gastrointestinal carcinoma [Unknown]
  - Hepatic cancer stage IV [Unknown]
  - Pain [Unknown]
  - Neoplasm malignant [Unknown]
  - Gallbladder cancer stage IV [Unknown]
  - Small intestine carcinoma stage IV [Unknown]
  - Gastric cancer stage IV [Unknown]
  - Lung carcinoma cell type unspecified stage IV [Unknown]
  - Feeding disorder [Unknown]

NARRATIVE: CASE EVENT DATE: 20190801
